FAERS Safety Report 14615473 (Version 1)
Quarter: 2018Q1

REPORT INFORMATION
  Report Type: Spontaneous
  Country: RU (occurrence: RU)
  Receive Date: 20180308
  Receipt Date: 20180308
  Transmission Date: 20180509
  Serious: Yes (Other)
  Sender: FDA-Public Use
  Company Number: RU-AMGEN-RUSSP2018029170

PATIENT
  Age: 24 Year
  Sex: Male

DRUGS (12)
  1. BLINCYTO [Suspect]
     Active Substance: BLINATUMOMAB
     Dosage: 9 MUG, UNK
     Route: 065
     Dates: start: 20161102
  2. MYCOPHENOLATE MOFETIL. [Concomitant]
     Active Substance: MYCOPHENOLATE MOFETIL
     Dosage: UNK
  3. PONATINIB [Concomitant]
     Active Substance: PONATINIB
     Indication: B PRECURSOR TYPE ACUTE LEUKAEMIA
     Dosage: 45 MG, UNK
     Dates: start: 20160401, end: 20160529
  4. BLINCYTO [Suspect]
     Active Substance: BLINATUMOMAB
     Dosage: 28 MUG, UNK
     Route: 065
  5. DEXAMETHASONE. [Concomitant]
     Active Substance: DEXAMETHASONE
     Indication: B PRECURSOR TYPE ACUTE LEUKAEMIA
     Dosage: 40 MG, UNK
  6. BLINCYTO [Suspect]
     Active Substance: BLINATUMOMAB
     Indication: B PRECURSOR TYPE ACUTE LEUKAEMIA
     Dosage: 9 MUG, UNK
     Route: 065
     Dates: start: 20151221
  7. NILOTINIB [Concomitant]
     Active Substance: NILOTINIB
     Indication: B PRECURSOR TYPE ACUTE LEUKAEMIA
     Dosage: 800 MG, UNK
     Dates: start: 20151201, end: 20160126
  8. BORTEZOMIB [Concomitant]
     Active Substance: BORTEZOMIB
     Dosage: 1.3 MG/M2, QWK
  9. CYTOXAN [Concomitant]
     Active Substance: CYCLOPHOSPHAMIDE
     Dosage: UNK
  10. MELPHALAN. [Concomitant]
     Active Substance: MELPHALAN
     Dosage: UNK
  11. CYCLOSPORINE. [Concomitant]
     Active Substance: CYCLOSPORINE
  12. FLUDARABINE [Concomitant]
     Active Substance: FLUDARABINE PHOSPHATE
     Dosage: UNK

REACTIONS (14)
  - Acute lymphocytic leukaemia refractory [Unknown]
  - Thrombocytopenia [Unknown]
  - Anaemia [Unknown]
  - Graft versus host disease in eye [Recovered/Resolved]
  - Pancytopenia [Unknown]
  - Central nervous system leukaemia [Unknown]
  - Herpes simplex meningitis [Recovered/Resolved]
  - Chronic graft versus host disease in skin [Recovered/Resolved]
  - Septic shock [Unknown]
  - Chronic graft versus host disease [Recovered/Resolved]
  - Neutropenia [Unknown]
  - Drug ineffective [Unknown]
  - Neurological symptom [Unknown]
  - Pyrexia [Unknown]

NARRATIVE: CASE EVENT DATE: 201602
